FAERS Safety Report 6052930-5 (Version None)
Quarter: 2009Q1

REPORT INFORMATION
  Report Type: 
  Country: None (occurrence: None)
  Receive Date: 20090122
  Receipt Date: 20090106
  Transmission Date: 20090719
  Serious: Yes (Other)
  Sender: FDA-Public Use
  Company Number: SPV1-2008-02671

PATIENT
  Age: 42 Year
  Sex: Female
  Weight: 61 kg

DRUGS (4)
  1. CARBATROL [Suspect]
     Indication: COMPLEX PARTIAL SEIZURES
     Dosage: 200 MG TO 400 MG DAILY,
     Dates: start: 20080514
  2. LAMOTRIGINE [Suspect]
     Indication: COMPLEX PARTIAL SEIZURES
     Dosage: 100 MG, 2X/DAY:BID,
     Dates: start: 20071101, end: 20071101
  3. KEPPRA [Suspect]
     Indication: COMPLEX PARTIAL SEIZURES
     Dosage: 2000 MG, 2X/DAY:BID,
     Dates: start: 20060701
  4. LAMICTAL [Concomitant]

REACTIONS (4)
  - COMPLEX PARTIAL SEIZURES [None]
  - CONDITION AGGRAVATED [None]
  - DRUG INEFFECTIVE [None]
  - TREATMENT NONCOMPLIANCE [None]
